FAERS Safety Report 4472395-4 (Version None)
Quarter: 2004Q3

REPORT INFORMATION
  Report Type: 
  Country: None (occurrence: None)
  Receive Date: 20040917
  Receipt Date: 20040720
  Transmission Date: 20050211
  Serious: No
  Sender: FDA-Public Use
  Company Number: US-JNJFOC-20040706188

PATIENT
  Age: 43 Year
  Sex: Female
  Weight: 52.1637 kg

DRUGS (3)
  1. ORTHO EVRA [Suspect]
     Indication: HORMONE REPLACEMENT THERAPY
     Dosage: 1 DOSE(S), 3 IN 4 WEEK, TRANSDERMAL
     Route: 062
     Dates: start: 20040201
  2. TEGRETOL [Concomitant]
  3. PAXIL [Concomitant]

REACTIONS (4)
  - APPLICATION SITE REACTION [None]
  - METRORRHAGIA [None]
  - OLIGOMENORRHOEA [None]
  - URINARY TRACT INFECTION [None]
